FAERS Safety Report 23592775 (Version 1)
Quarter: 2024Q1

REPORT INFORMATION
  Report Type: Spontaneous
  Country: DE (occurrence: DE)
  Receive Date: 20240304
  Receipt Date: 20240304
  Transmission Date: 20240410
  Serious: Yes (Hospitalization)
  Sender: FDA-Public Use
  Company Number: DE-BIOGEN-2024BI01252697

PATIENT
  Age: 62 Year
  Sex: Female
  Weight: 110 kg

DRUGS (1)
  1. TYSABRI [Suspect]
     Active Substance: NATALIZUMAB
     Indication: Relapsing-remitting multiple sclerosis
     Route: 050
     Dates: start: 202101

REACTIONS (1)
  - Gastrointestinal stromal tumour [Recovered/Resolved]

NARRATIVE: CASE EVENT DATE: 20220715
